FAERS Safety Report 17246132 (Version 1)
Quarter: 2019Q4

REPORT INFORMATION
  Report Type: Spontaneous
  Country: US (occurrence: US)
  Receive Date: 20191213
  Receipt Date: 20191213
  Transmission Date: 20200122
  Serious: No
  Sender: FDA-Public Use
  Company Number: None

PATIENT
  Age: 64 Year
  Sex: Male

DRUGS (1)
  1. ENTYVIO [Suspect]
     Active Substance: VEDOLIZUMAB
     Dosage: ?          OTHER FREQUENCY:1X EVERY 8 WEEKS;?
     Route: 042
     Dates: start: 20191112, end: 20191213

REACTIONS (2)
  - Fluid overload [None]
  - Cardiac failure congestive [None]

NARRATIVE: CASE EVENT DATE: 20191213
